FAERS Safety Report 5382673-2 (Version None)
Quarter: 2007Q3

REPORT INFORMATION
  Report Type: 
  Country: None (occurrence: None)
  Receive Date: 20070703
  Receipt Date: 20070703
  Transmission Date: 20080115
  Serious: Yes (Hospitalization)
  Sender: FDA-Public Use
  Company Number: None

PATIENT
  Sex: Female
  Weight: 62.5 kg

DRUGS (10)
  1. CISPLATIN [Suspect]
     Dosage: 86 MG
  2. DOXORUBICIN HYDROCHLORIDE [Suspect]
     Dosage: 78 MG
  3. TAXOL [Suspect]
     Dosage: 277 MG
  4. ALBUTEROL [Concomitant]
  5. KARELIA XT [Concomitant]
  6. ONDANSETRON [Concomitant]
  7. SPIRONOLACTONE [Concomitant]
  8. UNIPHYL [Concomitant]
  9. ZANTAC [Concomitant]
  10. ZETIA [Concomitant]

REACTIONS (3)
  - DEHYDRATION [None]
  - FATIGUE [None]
  - HYPOTENSION [None]
